FAERS Safety Report 23864068 (Version 1)
Quarter: 2024Q2

REPORT INFORMATION
  Report Type: Report from Study
  Country: FI (occurrence: FI)
  Receive Date: 20240516
  Receipt Date: 20240516
  Transmission Date: 20240716
  Serious: Yes (Other)
  Sender: FDA-Public Use
  Company Number: FI-CAMURUS AB-FI-CAM-24-00505

PATIENT
  Sex: Female

DRUGS (3)
  1. BUPRENORPHINE [Suspect]
     Active Substance: BUPRENORPHINE
     Indication: Drug withdrawal maintenance therapy
     Dosage: 64 MILLIGRAM, EVERY 35 DAYS
     Route: 064
  2. BUPRENORPHINE [Suspect]
     Active Substance: BUPRENORPHINE
     Dosage: 64 MILLIGRAM, EVERY 28 DAYS
     Route: 064
  3. CANNABIS SATIVA SUBSP. INDICA TOP [Suspect]
     Active Substance: CANNABIS SATIVA SUBSP. INDICA TOP
     Indication: Product used for unknown indication
     Dosage: UNK UNK, UNK
     Route: 065

REACTIONS (3)
  - Neonatal respiratory distress [Unknown]
  - Drug withdrawal syndrome neonatal [Unknown]
  - Maternal exposure during pregnancy [Unknown]
